FAERS Safety Report 4630818-1 (Version None)
Quarter: 2005Q1

REPORT INFORMATION
  Report Type: 
  Country: None (occurrence: None)
  Receive Date: 20050331
  Receipt Date: 20050331
  Transmission Date: 20050727
  Serious: Yes (Other)
  Sender: FDA-Public Use
  Company Number: None

PATIENT
  Age: 73 Year
  Sex: Male

DRUGS (1)
  1. METFORMIN  500MG [Suspect]
     Indication: DIABETES MELLITUS
     Dosage: TAKE ONE TABLET BY MOUTH THREE TIMES A DAY PRIOR TO MEALS
     Route: 048

REACTIONS (2)
  - BLOOD GLUCOSE FLUCTUATION [None]
  - STOOL ANALYSIS ABNORMAL [None]
